FAERS Safety Report 14433077 (Version 1)
Quarter: 2018Q1

REPORT INFORMATION
  Report Type: Spontaneous
  Country: US (occurrence: US)
  Receive Date: 20180124
  Receipt Date: 20180124
  Transmission Date: 20180509
  Serious: Yes (Hospitalization, Other)
  Sender: FDA-Public Use
  Company Number: US-PIRAMAL CRITICAL CARE LIMITED-2017-PEL-003102

PATIENT

DRUGS (1)
  1. GABLOFEN [Suspect]
     Active Substance: BACLOFEN
     Indication: MUSCLE SPASTICITY
     Dosage: UNK
     Route: 037

REACTIONS (6)
  - Meningitis [Unknown]
  - Feeling abnormal [None]
  - Staphylococcal infection [None]
  - Hypokinesia [Unknown]
  - Pyrexia [None]
  - Procedural complication [Recovered/Resolved]

NARRATIVE: CASE EVENT DATE: 20170607
